FAERS Safety Report 9831116 (Version 1)
Quarter: 2014Q1

REPORT INFORMATION
  Report Type: Report from Study
  Country: US (occurrence: US)
  Receive Date: 20140121
  Receipt Date: 20140121
  Transmission Date: 20141002
  Serious: Yes (Hospitalization, Disabling, Other)
  Sender: FDA-Public Use
  Company Number: US-ROCHE-1333582

PATIENT
  Sex: Male

DRUGS (9)
  1. XOLAIR [Suspect]
     Indication: ASTHMA
     Dosage: 1 EVERY OTHER WEEK
     Route: 058
  2. PROZAC [Concomitant]
  3. CLARITIN [Concomitant]
  4. SPIRIVA [Concomitant]
  5. QVAR [Concomitant]
  6. DULERA [Concomitant]
     Dosage: 200-5 MCG, 2 PUFFS
     Route: 065
  7. TYLENOL [Concomitant]
  8. SEROQUEL [Concomitant]
  9. PROVENTIL HFA [Concomitant]
     Dosage: 2 PUFFS EVERY 4-6 HOURS
     Route: 065

REACTIONS (21)
  - Rib fracture [Unknown]
  - Hip fracture [Unknown]
  - Lower limb fracture [Unknown]
  - Skull fracture [Unknown]
  - Exostosis [Unknown]
  - Ankle fracture [Unknown]
  - Upper limb fracture [Unknown]
  - Blindness [Unknown]
  - Immunodeficiency [Unknown]
  - Eosinophil count increased [Unknown]
  - Visual acuity reduced [Not Recovered/Not Resolved]
  - Dyspnoea [Unknown]
  - Contusion [Unknown]
  - Pain of skin [Unknown]
  - Cough [Unknown]
  - Hiatus hernia [Unknown]
  - Hypertension [Unknown]
  - Visual acuity reduced [Unknown]
  - Stress [Unknown]
  - Asthma [Unknown]
  - Dyspnoea [Not Recovered/Not Resolved]
